FAERS Safety Report 10383244 (Version 1)
Quarter: 2014Q3

REPORT INFORMATION
  Report Type: Spontaneous
  Country: CN (occurrence: CN)
  Receive Date: 20140814
  Receipt Date: 20140814
  Transmission Date: 20150326
  Serious: Yes (Hospitalization)
  Sender: FDA-Public Use
  Company Number: PHHY2014CN096298

PATIENT
  Age: 27 Year
  Sex: Female

DRUGS (5)
  1. THIAMAZOLE [Suspect]
     Active Substance: METHIMAZOLE
     Indication: HYPERTHYROIDISM
     Dosage: 10 MG, TID
  2. THIAMAZOLE [Suspect]
     Active Substance: METHIMAZOLE
     Dosage: 10 MG, BID
  3. THIAMAZOLE [Suspect]
     Active Substance: METHIMAZOLE
     Dosage: 5 MG, QD
  4. THIAMAZOLE [Suspect]
     Active Substance: METHIMAZOLE
     Dosage: 10 MG, QD
  5. PROPANOLOL [Concomitant]
     Active Substance: PROPRANOLOL HYDROCHLORIDE
     Indication: HEART RATE
     Dosage: 10 MG, TID

REACTIONS (12)
  - Oropharyngeal pain [Recovered/Resolved]
  - Sinus tachycardia [Recovered/Resolved]
  - Agranulocytosis [Recovered/Resolved]
  - Basedow^s disease [Unknown]
  - Hyperplasia [Recovered/Resolved]
  - Pyrexia [Recovered/Resolved]
  - Dizziness [Recovered/Resolved]
  - Vomiting [Recovered/Resolved]
  - Drug ineffective [Unknown]
  - Thyrotoxic crisis [Recovered/Resolved]
  - Asthenia [Recovered/Resolved]
  - Tremor [Recovered/Resolved]

NARRATIVE: CASE EVENT DATE: 201305
